FAERS Safety Report 6496408-3 (Version None)
Quarter: 2009Q4

REPORT INFORMATION
  Report Type: 
  Country: None (occurrence: None)
  Receive Date: 20091209
  Receipt Date: 20091125
  Transmission Date: 20100525
  Serious: Yes (Other)
  Sender: FDA-Public Use
  Company Number: 220004L09JPN

PATIENT
  Age: 14 Year
  Sex: Female

DRUGS (1)
  1. SOMATROPIN (SOMATROPIN) [Suspect]
     Indication: GROWTH HORMONE DEFICIENCY

REACTIONS (4)
  - AUTOLOGOUS BONE MARROW TRANSPLANTATION THERAPY [None]
  - THYROGLOBULIN INCREASED [None]
  - THYROID CANCER [None]
  - THYROID MASS [None]
